FAERS Safety Report 7294676-1 (Version None)
Quarter: 2011Q1

REPORT INFORMATION
  Report Type: 
  Country: None (occurrence: None)
  Receive Date: 20110216
  Receipt Date: 20110208
  Transmission Date: 20110831
  Serious: Yes (Hospitalization)
  Sender: FDA-Public Use
  Company Number: GB-PFIZER INC-2011028813

PATIENT
  Age: 70 Year
  Sex: Male

DRUGS (6)
  1. LISINOPRIL [Suspect]
     Route: 048
  2. ZOLEDRONIC ACID [Concomitant]
     Indication: PROSTATE CANCER
     Route: 042
  3. ADCAL-D3 [Concomitant]
     Indication: PROSTATE CANCER
     Route: 048
  4. CELECOXIB [Suspect]
     Indication: PROSTATE CANCER
     Route: 048
  5. BENDROFLUMETHIAZIDE [Suspect]
     Route: 048
  6. SIMVASTATIN [Concomitant]
     Dosage: 40 MG, NOCTE

REACTIONS (1)
  - DEHYDRATION [None]
